FAERS Safety Report 12190376 (Version 1)
Quarter: 2016Q1

REPORT INFORMATION
  Report Type: Spontaneous
  Country: US (occurrence: None)
  Receive Date: 20160317
  Receipt Date: 20160317
  Transmission Date: 20160526
  Serious: Yes (Other)
  Sender: FDA-Public Use
  Company Number: None

PATIENT
  Age: 61 Year
  Sex: Female

DRUGS (1)
  1. HUMIRA [Suspect]
     Active Substance: ADALIMUMAB
     Indication: PSORIASIS
     Dosage: INJECTABLE?QOW
     Route: 058
     Dates: start: 20160301

REACTIONS (3)
  - Fatigue [None]
  - Psoriasis [None]
  - Injection site rash [None]

NARRATIVE: CASE EVENT DATE: 20160309
